FAERS Safety Report 5097513-9 (Version None)
Quarter: 2006Q3

REPORT INFORMATION
  Report Type: 
  Country: None (occurrence: None)
  Receive Date: 20060901
  Receipt Date: 20060626
  Transmission Date: 20061208
  Serious: No
  Sender: FDA-Public Use
  Company Number: DE200608000323

PATIENT
  Age: 85 Year
  Sex: Female
  Weight: 78 kg

DRUGS (8)
  1. CYMBALTA [Suspect]
     Indication: DEPRESSION
     Dosage: SEE IMAGE, ORAL
     Route: 048
     Dates: start: 20060121, end: 20060131
  2. CYMBALTA [Suspect]
     Indication: DEPRESSION
     Dosage: SEE IMAGE, ORAL
     Route: 048
     Dates: start: 20060201
  3. PANTOZOL (PANTOPRAZOLE SODIUM) [Concomitant]
  4. IDEOS (CALCIUM CARBONATE, COLECALCIFEROL) [Concomitant]
  5. PASPERTIN (METOCLOPRAMIDE HYDROCHLORIDE) [Concomitant]
  6. NOVALGIN (METAMIZOLE SODIUM MONOHYDRATE) [Concomitant]
  7. ACTRAPHANE HM (INSULIN HUMAN INJECTION, ISOPHANE) [Concomitant]
  8. DURAGESIC-100 [Concomitant]

REACTIONS (2)
  - GAMMA-GLUTAMYLTRANSFERASE INCREASED [None]
  - HYPERHIDROSIS [None]
